FAERS Safety Report 7539880-X (Version None)
Quarter: 2011Q2

REPORT INFORMATION
  Report Type: 
  Country: None (occurrence: None)
  Receive Date: 20110610
  Receipt Date: 20110607
  Transmission Date: 20111010
  Serious: Yes (Death, Life-Threatening, Other)
  Sender: FDA-Public Use
  Company Number: GB-PFIZER INC-2011124587

PATIENT
  Sex: Female

DRUGS (4)
  1. ANTIBIOTICS [Suspect]
     Indication: SKIN CANDIDA
     Route: 042
  2. FLUCONAZOLE [Suspect]
     Indication: SKIN CANDIDA
     Route: 042
  3. MICAFUNGIN [Suspect]
     Indication: SKIN CANDIDA
     Route: 042
  4. MICONAZOLE [Suspect]
     Indication: SKIN CANDIDA
     Route: 061

REACTIONS (4)
  - DRUG INEFFECTIVE [None]
  - PULMONARY HAEMORRHAGE [None]
  - FUNGAL SEPSIS [None]
  - ENCEPHALITIS FUNGAL [None]
